FAERS Safety Report 22151727 (Version 2)
Quarter: 2023Q1

REPORT INFORMATION
  Report Type: Report from Study
  Country: US (occurrence: US)
  Receive Date: 20230329
  Receipt Date: 20230329
  Transmission Date: 20230418
  Serious: No
  Sender: FDA-Public Use
  Company Number: US-BoehringerIngelheim-2023-BI-228151

PATIENT
  Age: 69 Year
  Sex: Male

DRUGS (1)
  1. OFEV [Suspect]
     Active Substance: NINTEDANIB
     Indication: Interstitial lung disease
     Route: 048
     Dates: start: 20230302

REACTIONS (3)
  - Hypertension [Unknown]
  - Productive cough [Recovered/Resolved]
  - Sputum discoloured [Recovered/Resolved]

NARRATIVE: CASE EVENT DATE: 20230301
